FAERS Safety Report 7778938-7 (Version None)
Quarter: 2011Q3

REPORT INFORMATION
  Report Type: 
  Country: None (occurrence: None)
  Receive Date: 20110926
  Receipt Date: 20110120
  Transmission Date: 20111222
  Serious: No
  Sender: FDA-Public Use
  Company Number: US-BAYER-2011-007907

PATIENT
  Age: 25 Year
  Sex: Male
  Weight: 86.168 kg

DRUGS (3)
  1. ULTRAVIST 150 [Suspect]
     Indication: FLANK PAIN
     Dosage: 500CC; 4 CC/SEC
     Route: 042
     Dates: start: 20110120
  2. ULTRAVIST 150 [Suspect]
     Indication: HAEMATURIA
  3. ULTRAVIST 150 [Suspect]
     Indication: COMPUTERISED TOMOGRAM

REACTIONS (1)
  - URTICARIA [None]
